FAERS Safety Report 11381224 (Version 1)
Quarter: 2015Q3

REPORT INFORMATION
  Report Type: Spontaneous
  Country: US (occurrence: US)
  Receive Date: 20150814
  Receipt Date: 20150814
  Transmission Date: 20151125
  Serious: No
  Sender: FDA-Public Use
  Company Number: US-JNJFOC-20150415424

PATIENT
  Sex: Female

DRUGS (1)
  1. DURAGESIC [Suspect]
     Active Substance: FENTANYL
     Indication: PRODUCT USED FOR UNKNOWN INDICATION
     Route: 062

REACTIONS (6)
  - Hyperhidrosis [Unknown]
  - Hyperacusis [Unknown]
  - Constipation [Unknown]
  - Feeling hot [Unknown]
  - Withdrawal syndrome [Unknown]
  - Insomnia [Unknown]
